FAERS Safety Report 20920057 (Version 1)
Quarter: 2022Q2

REPORT INFORMATION
  Report Type: Spontaneous
  Country: US (occurrence: None)
  Receive Date: 20220604
  Receipt Date: 20220604
  Transmission Date: 20220721
  Serious: Yes (Hospitalization)
  Sender: FDA-Public Use
  Company Number: None

PATIENT
  Sex: Female
  Weight: 97.7 kg

DRUGS (6)
  1. CYCLOPHOSPHAMIDE [Suspect]
     Active Substance: CYCLOPHOSPHAMIDE
  2. DOXORUBICIN HYDROCHLORIDE [Concomitant]
  3. ETOPOSIDE [Concomitant]
     Active Substance: ETOPOSIDE
  4. PREDNISONE [Concomitant]
     Active Substance: PREDNISONE
  5. RITUXIMAB [Concomitant]
     Active Substance: RITUXIMAB
  6. VINCRISTINE SULFATE [Concomitant]
     Active Substance: VINCRISTINE SULFATE

REACTIONS (2)
  - Catheter site erythema [None]
  - Catheter site pain [None]

NARRATIVE: CASE EVENT DATE: 20220509
